FAERS Safety Report 6120632-2 (Version None)
Quarter: 2009Q1

REPORT INFORMATION
  Report Type: 
  Country: None (occurrence: None)
  Receive Date: 20090312
  Receipt Date: 20090312
  Transmission Date: 20090719
  Serious: No
  Sender: FDA-Public Use
  Company Number: None

PATIENT
  Age: 33 Year
  Sex: Female
  Weight: 51.2565 kg

DRUGS (1)
  1. ABILIFY [Suspect]
     Indication: MAJOR DEPRESSION
     Dosage: NOT KNOWN AT LEAST 3 SEP. TI IM
     Route: 030
     Dates: start: 20081008, end: 20081011

REACTIONS (3)
  - CONVULSION [None]
  - IMPAIRED WORK ABILITY [None]
  - MYOCLONUS [None]
